FAERS Safety Report 18971403 (Version 1)
Quarter: 2021Q1

REPORT INFORMATION
  Report Type: Spontaneous
  Country: BE (occurrence: BE)
  Receive Date: 20210304
  Receipt Date: 20210304
  Transmission Date: 20210420
  Serious: Yes (Other)
  Sender: FDA-Public Use
  Company Number: BE-JNJFOC-20210303330

PATIENT
  Sex: Male

DRUGS (3)
  1. INVEGA [Suspect]
     Active Substance: PALIPERIDONE
     Route: 048
  2. INVEGA [Suspect]
     Active Substance: PALIPERIDONE
     Route: 048
  3. INVEGA [Suspect]
     Active Substance: PALIPERIDONE
     Indication: PRODUCT USED FOR UNKNOWN INDICATION
     Dosage: FIRST 3MG, THEN 6MG AND FINALLY 9MG
     Route: 048
     Dates: start: 2015

REACTIONS (3)
  - Blindness day [Unknown]
  - Gastrointestinal disorder [Unknown]
  - Insomnia [Unknown]
